FAERS Safety Report 4585806-0 (Version None)
Quarter: 2005Q1

REPORT INFORMATION
  Report Type: 
  Country: None (occurrence: None)
  Receive Date: 20050216
  Receipt Date: 20041228
  Transmission Date: 20050727
  Serious: Yes (Other)
  Sender: FDA-Public Use
  Company Number: 2005AL000020

PATIENT
  Age: 59 Year
  Sex: Male

DRUGS (3)
  1. METOCLOPRAMIDE [Suspect]
     Indication: GASTROOESOPHAGEAL REFLUX DISEASE
     Dates: start: 20000808, end: 20030718
  2. METOCLOPRAMIDE ORAL SOLUTOIN USP, EQ. 5 MG BASE/5 ML (ALPHARMA) [Suspect]
     Indication: GASTROOESOPHAGEAL REFLUX DISEASE
     Dates: start: 20000808, end: 20030718
  3. REGLAN [Suspect]
     Indication: GASTROOESOPHAGEAL REFLUX DISEASE
     Dates: start: 20000808, end: 20030718

REACTIONS (8)
  - ANHEDONIA [None]
  - ANXIETY [None]
  - DYSTONIA [None]
  - EMOTIONAL DISTRESS [None]
  - INJURY [None]
  - NERVE INJURY [None]
  - TARDIVE DYSKINESIA [None]
  - TONGUE DISORDER [None]
